FAERS Safety Report 23933758 (Version 2)
Quarter: 2024Q2

REPORT INFORMATION
  Report Type: Spontaneous
  Country: CN (occurrence: CN)
  Receive Date: 20240603
  Receipt Date: 20240607
  Transmission Date: 20240715
  Serious: Yes (Hospitalization)
  Sender: FDA-Public Use
  Company Number: CN-PFIZER INC-202400181905

PATIENT
  Age: 35 Year
  Sex: Female

DRUGS (2)
  1. CIBINQO [Suspect]
     Active Substance: ABROCITINIB
     Dosage: 1 TABLET EACH TIME, ONCE A DAY
     Route: 048
     Dates: start: 202309, end: 202310
  2. CIBINQO [Suspect]
     Active Substance: ABROCITINIB
     Dosage: 2 TABLETS EACH TIME, ONCE A DAY
     Route: 048
     Dates: start: 202311, end: 202311

REACTIONS (2)
  - Thymoma [Unknown]
  - Eye disorder [Unknown]

NARRATIVE: CASE EVENT DATE: 20240101
